FAERS Safety Report 12676153 (Version 1)
Quarter: 2016Q3

REPORT INFORMATION
  Report Type: Spontaneous
  Country: JP (occurrence: JP)
  Receive Date: 20160823
  Receipt Date: 20160823
  Transmission Date: 20161109
  Serious: Yes (Other)
  Sender: FDA-Public Use
  Company Number: JP-LUPIN PHARMACEUTICALS INC.-2016-03653

PATIENT
  Age: 68 Year
  Sex: Male

DRUGS (1)
  1. LOSARTAN POTASSIUM TAB 50 MG (AMEL) [Suspect]
     Active Substance: LOSARTAN POTASSIUM
     Indication: PRODUCT USED FOR UNKNOWN INDICATION
     Route: 065
     Dates: start: 201408, end: 201505

REACTIONS (1)
  - Drug-induced liver injury [Unknown]
